FAERS Safety Report 10738448 (Version 2)
Quarter: 2015Q1

REPORT INFORMATION
  Report Type: Spontaneous
  Country: PH (occurrence: PH)
  Receive Date: 20150126
  Receipt Date: 20150202
  Transmission Date: 20150721
  Serious: Yes (Other)
  Sender: FDA-Public Use
  Company Number: PH-EISAI MEDICAL RESEARCH-EC-2015-003320

PATIENT
  Age: 18 Year
  Sex: Male

DRUGS (1)
  1. ARICEPT [Suspect]
     Active Substance: DONEPEZIL HYDROCHLORIDE
     Indication: CRANIOCEREBRAL INJURY
     Route: 048
     Dates: start: 20150117, end: 20150123

REACTIONS (2)
  - Aggression [Recovered/Resolved]
  - Suicidal ideation [Recovered/Resolved]

NARRATIVE: CASE EVENT DATE: 20150121
